FAERS Safety Report 16307702 (Version 2)
Quarter: 2019Q2

REPORT INFORMATION
  Report Type: Report from Study
  Country: None (occurrence: US)
  Receive Date: 20190514
  Receipt Date: 20190521
  Transmission Date: 20190711
  Serious: Yes (Hospitalization)
  Sender: FDA-Public Use
  Company Number: US-ABBVIE-19K-163-2777268-00

PATIENT
  Age: 18 Year
  Sex: Female

DRUGS (1)
  1. HUMIRA [Suspect]
     Active Substance: ADALIMUMAB
     Indication: CROHN^S DISEASE
     Route: 058
     Dates: start: 20190308, end: 20190502

REACTIONS (10)
  - Hypophagia [Unknown]
  - Dehydration [Unknown]
  - Wrong technique in product usage process [Unknown]
  - Crohn^s disease [Unknown]
  - Incorrect dose administered [Unknown]
  - Appendicitis [Unknown]
  - Injection site pain [Unknown]
  - Wrong technique in product usage process [Unknown]
  - Injection site pain [Not Recovered/Not Resolved]
  - Fluid intake reduced [Unknown]

NARRATIVE: CASE EVENT DATE: 2019
